FAERS Safety Report 9190653 (Version 1)
Quarter: 2013Q1

REPORT INFORMATION
  Report Type: Spontaneous
  Country: GB (occurrence: None)
  Receive Date: 20130322
  Receipt Date: 20130322
  Transmission Date: 20140127
  Serious: Yes (Other)
  Sender: FDA-Public Use
  Company Number: AUR-APL-2013-02267

PATIENT
  Age: 64 Year
  Sex: Male
  Weight: 114.3 kg

DRUGS (2)
  1. SIMVASTATIN (SIMVASTATIN) [Suspect]
     Indication: BLOOD CHOLESTEROL INCREASED
     Route: 048
     Dates: start: 20110101, end: 20120301
  2. LISINOPRIL (LISINOPRIL) [Concomitant]

REACTIONS (2)
  - Myalgia [None]
  - Renal injury [None]
